FAERS Safety Report 18473836 (Version 4)
Quarter: 2024Q3

REPORT INFORMATION
  Report Type: Other
  Country: DE (occurrence: DE)
  Receive Date: 20201106
  Receipt Date: 20240723
  Transmission Date: 20241016
  Serious: Yes (Life-Threatening, Hospitalization, Other)
  Sender: EMD SERONO INC
  Company Number: DE-MERCK HEALTHCARE KGAA-9196420

PATIENT
  Age: 76 Year
  Sex: Male
  Weight: 100 kg

DRUGS (8)
  1. METFORMIN [Suspect]
     Active Substance: METFORMIN HYDROCHLORIDE
     Indication: Type 2 diabetes mellitus
     Route: 048
  2. DAPAGLIFLOZIN [Suspect]
     Active Substance: DAPAGLIFLOZIN
     Indication: Type 2 diabetes mellitus
     Route: 048
  3. OXYGEN [Concomitant]
     Active Substance: OXYGEN
     Indication: Chronic obstructive pulmonary disease
  4. ALBUTEROL [Concomitant]
     Active Substance: ALBUTEROL
     Indication: Chronic obstructive pulmonary disease
  5. LIDOCAINE [Concomitant]
     Active Substance: LIDOCAINE
     Indication: Perioperative analgesia
  6. NOREPINEPHRINE [Concomitant]
     Active Substance: NOREPINEPHRINE\NOREPINEPHRINE BITARTRATE
     Indication: Product used for unknown indication
  7. NOREPINEPHRINE [Concomitant]
     Active Substance: NOREPINEPHRINE\NOREPINEPHRINE BITARTRATE
  8. NOREPINEPHRINE [Concomitant]
     Active Substance: NOREPINEPHRINE\NOREPINEPHRINE BITARTRATE

REACTIONS (7)
  - Euglycaemic diabetic ketoacidosis [Recovering/Resolving]
  - Atrial flutter [Unknown]
  - Supraventricular tachycardia [Recovering/Resolving]
  - Shock [Recovering/Resolving]
  - Haemodynamic instability [Recovering/Resolving]
  - Lactic acidosis [Recovering/Resolving]
  - Metabolic acidosis [Recovering/Resolving]
